FAERS Safety Report 15465726 (Version 4)
Quarter: 2018Q4

REPORT INFORMATION
  Report Type: Spontaneous
  Country: DE (occurrence: DE)
  Receive Date: 20181004
  Receipt Date: 20181026
  Transmission Date: 20190204
  Serious: Yes (Life-Threatening, Hospitalization)
  Sender: FDA-Public Use
  Company Number: DE-MYLANLABS-2018M1073245

PATIENT
  Age: 23 Year
  Sex: Male
  Weight: 83 kg

DRUGS (5)
  1. LEPONEX [Suspect]
     Active Substance: CLOZAPINE
     Indication: PSYCHOTIC DISORDER
     Dosage: 325 MG, QD
     Route: 048
     Dates: start: 2013
  2. LEPONEX [Suspect]
     Active Substance: CLOZAPINE
     Dosage: 250 MG, QD
  3. LEPONEX [Suspect]
     Active Substance: CLOZAPINE
     Dosage: UNK
  4. TAVOR (LORAZEPAM) [Suspect]
     Active Substance: LORAZEPAM
     Indication: SOMATIC SYMPTOM DISORDER
     Dosage: 2 MG, UNK
  5. ABILIFY [Suspect]
     Active Substance: ARIPIPRAZOLE
     Indication: PRODUCT USED FOR UNKNOWN INDICATION
     Dosage: 20 MG, UNK

REACTIONS (7)
  - Dyspnoea [Not Recovered/Not Resolved]
  - Psychogenic seizure [Not Recovered/Not Resolved]
  - Abnormal behaviour [Not Recovered/Not Resolved]
  - Enuresis [Not Recovered/Not Resolved]
  - Staring [Not Recovered/Not Resolved]
  - Confusional state [Not Recovered/Not Resolved]
  - Fear [Not Recovered/Not Resolved]

NARRATIVE: CASE EVENT DATE: 2014
